FAERS Safety Report 19775737 (Version 2)
Quarter: 2022Q3

REPORT INFORMATION
  Report Type: Spontaneous
  Country: JP (occurrence: JP)
  Receive Date: 20210902
  Receipt Date: 20220701
  Transmission Date: 20221026
  Serious: Yes (Life-Threatening)
  Sender: FDA-Public Use
  Company Number: JP-SUN PHARMACEUTICAL INDUSTRIES LTD-2021R1-308227

PATIENT
  Age: 42 Year
  Sex: Male
  Weight: 25.5 kg

DRUGS (7)
  1. TEGRETOL [Interacting]
     Active Substance: CARBAMAZEPINE
     Indication: Epilepsy
     Dosage: 300 MILLIGRAM, BID
     Route: 048
  2. VALPROATE SODIUM [Concomitant]
     Active Substance: VALPROATE SODIUM
     Dosage: 400 MILLIGRAM, BID
     Route: 048
  3. FD+C RED NO. 3 [Interacting]
     Active Substance: FD+C RED NO. 3
     Indication: Respiratory tract infection
     Dosage: UNK
     Route: 048
     Dates: start: 20210726, end: 20210812
  4. MYSTAN [Concomitant]
     Active Substance: CLOBAZAM
     Indication: Epilepsy
     Dosage: 6 MILLIGRAM, BID
     Route: 048
  5. MAGNESIUM OXIDE [Concomitant]
     Active Substance: MAGNESIUM OXIDE
     Indication: Constipation
     Dosage: 0.5 GRAM, BID
     Route: 048
  6. LAMOTRIGINE [Concomitant]
     Active Substance: LAMOTRIGINE
     Indication: Epilepsy
     Dosage: 25 MILLIGRAM, BID
     Route: 048
  7. TAMSULOSIN [Concomitant]
     Active Substance: TAMSULOSIN
     Indication: Dysuria
     Dosage: 0.2 MILLIGRAM, OD
     Route: 048
     Dates: start: 20200403

REACTIONS (4)
  - Hypoglycaemia [Recovered/Resolved]
  - Vomiting [Recovered/Resolved]
  - Drug level increased [Recovered/Resolved]
  - Drug interaction [Recovered/Resolved]
